FAERS Safety Report 6054878-9 (Version None)
Quarter: 2009Q1

REPORT INFORMATION
  Report Type: 
  Country: None (occurrence: None)
  Receive Date: 20090128
  Receipt Date: 20090116
  Transmission Date: 20090719
  Serious: Yes (Other)
  Sender: FDA-Public Use
  Company Number: PHHY2008DE26552

PATIENT
  Sex: Female
  Weight: 83 kg

DRUGS (5)
  1. LOCHOL [Suspect]
     Indication: HYPERCHOLESTEROLAEMIA
     Dosage: 40MG/DAY
     Route: 048
     Dates: start: 20070522, end: 20080530
  2. LOCHOL [Suspect]
     Dosage: 40MG/DAY
     Route: 048
     Dates: start: 20080624, end: 20081115
  3. BETA BLOCKING AGENTS [Concomitant]
     Indication: HYPERTENSION
  4. BISOPROLOL [Concomitant]
     Indication: HYPERTENSION
  5. THYRONAJOD [Concomitant]
     Indication: AUTOIMMUNE THYROIDITIS

REACTIONS (9)
  - ARTHRALGIA [None]
  - ARTHROPATHY [None]
  - ARTHROSCOPY [None]
  - BONE DISORDER [None]
  - HIP ARTHROPLASTY [None]
  - MUSCLE DISORDER [None]
  - MUSCLE SPASMS [None]
  - MUSCULOSKELETAL DISCOMFORT [None]
  - MYALGIA [None]
